FAERS Safety Report 6871674-0 (Version None)
Quarter: 2010Q3

REPORT INFORMATION
  Report Type: 
  Country: None (occurrence: None)
  Receive Date: 20100723
  Receipt Date: 20100715
  Transmission Date: 20110219
  Serious: Yes (Disabling)
  Sender: FDA-Public Use
  Company Number: GXKR2010GB07904

PATIENT
  Age: 84 Year
  Sex: Male

DRUGS (8)
  1. DOXAZOSIN MESYLATE [Suspect]
     Indication: BLOOD PRESSURE INCREASED
     Dosage: 2 MG, UNK
     Route: 048
     Dates: start: 20090803, end: 20100319
  2. ADALAT [Concomitant]
     Dosage: 20 MG, BID
     Route: 048
     Dates: start: 20100421
  3. CYCLOPENTOLATE HCL [Concomitant]
     Dosage: UNK
     Dates: start: 20100421
  4. LATANOPROST [Concomitant]
     Dosage: 2 DF, UNK
     Dates: start: 20060411
  5. MAXIDEX [Concomitant]
     Dosage: 1 DF, QID
     Dates: start: 20100305
  6. PARACETAMOL [Concomitant]
     Dosage: 500 MG, PRN
     Route: 048
     Dates: start: 20090430
  7. RAMIPRIL [Concomitant]
     Dosage: 5 MG, UNK
     Route: 048
     Dates: start: 20040510
  8. TIMOLOL MALEATE [Concomitant]
     Dosage: UNK
     Dates: start: 20060411

REACTIONS (2)
  - FLOPPY IRIS SYNDROME [None]
  - VISUAL ACUITY REDUCED [None]
